FAERS Safety Report 6963543-2 (Version None)
Quarter: 2010Q3

REPORT INFORMATION
  Report Type: 
  Country: None (occurrence: None)
  Receive Date: 20100902
  Receipt Date: 20100819
  Transmission Date: 20110219
  Serious: Yes (Other)
  Sender: FDA-Public Use
  Company Number: GB-GENENTECH-306018

PATIENT

DRUGS (3)
  1. LUCENTIS [Suspect]
     Indication: PRODUCT USED FOR UNKNOWN INDICATION
     Dosage: UNK
     Route: 031
     Dates: start: 20080110
  2. LUCENTIS [Suspect]
     Dosage: UNK
     Route: 031
     Dates: start: 20080207
  3. LUCENTIS [Suspect]
     Dosage: UNK
     Route: 031
     Dates: start: 20080306

REACTIONS (1)
  - VISUAL ACUITY REDUCED [None]
